FAERS Safety Report 4911349-8 (Version None)
Quarter: 2006Q1

REPORT INFORMATION
  Report Type: 
  Country: None (occurrence: None)
  Receive Date: 20060207
  Receipt Date: 20060119
  Transmission Date: 20060701
  Serious: Yes (Life-Threatening, Hospitalization)
  Sender: FDA-Public Use
  Company Number: THYM-10808

PATIENT
  Age: 70 Year
  Sex: Male
  Weight: 120 kg

DRUGS (10)
  1. THYMOGLOBULIN [Suspect]
     Indication: RENAL TRANSPLANT
     Dosage: 150 MG QD IV
     Route: 042
     Dates: start: 20050923, end: 20050926
  2. SOLU-MEDROL [Concomitant]
  3. CELLCEPT [Concomitant]
  4. ALBUTEROL [Concomitant]
  5. PROTONIX [Concomitant]
  6. NYSTATIN [Concomitant]
  7. LASIX [Concomitant]
  8. DOPAMINE [Concomitant]
  9. HEPARIN [Concomitant]
  10. DIPRIVAN [Concomitant]

REACTIONS (27)
  - ACIDOSIS [None]
  - ACTIVATED PARTIAL THROMBOPLASTIN TIME PROLONGED [None]
  - AGITATION [None]
  - ANAEMIA [None]
  - ARTERIOVENOUS FISTULA [None]
  - ASTHENIA [None]
  - ATRIAL FIBRILLATION [None]
  - BLOOD CULTURE POSITIVE [None]
  - BLOOD GLUCOSE INCREASED [None]
  - COMPLICATIONS OF TRANSPLANTED KIDNEY [None]
  - DEEP VEIN THROMBOSIS [None]
  - DEPRESSED LEVEL OF CONSCIOUSNESS [None]
  - DISORIENTATION [None]
  - DUODENAL ULCER [None]
  - FLUID OVERLOAD [None]
  - GASTROINTESTINAL HAEMORRHAGE [None]
  - PLATELET COUNT DECREASED [None]
  - PNEUMONIA [None]
  - PSEUDOMONAS INFECTION [None]
  - RENAL TUBULAR NECROSIS [None]
  - RESPIRATORY FAILURE [None]
  - SEPSIS [None]
  - SERRATIA BACTERAEMIA [None]
  - SERRATIA INFECTION [None]
  - SPUTUM CULTURE POSITIVE [None]
  - URINE OUTPUT DECREASED [None]
  - VENOUS THROMBOSIS [None]
